FAERS Safety Report 5099885-8 (Version None)
Quarter: 2006Q3

REPORT INFORMATION
  Report Type: 
  Country: None (occurrence: None)
  Receive Date: 20060906
  Receipt Date: 20060906
  Transmission Date: 20061208
  Serious: Yes (Hospitalization)
  Sender: FDA-Public Use
  Company Number: None

PATIENT
  Age: 24 Year
  Sex: Male
  Weight: 79.8331 kg

DRUGS (7)
  1. L-ASPARAGINASE [Suspect]
     Indication: ACUTE LYMPHOCYTIC LEUKAEMIA
     Dates: start: 20060102, end: 20060828
  2. METHOTREXATE [Suspect]
     Indication: ACUTE LYMPHOCYTIC LEUKAEMIA
     Dates: start: 20060102, end: 20060828
  3. ARA-C [Suspect]
     Indication: ACUTE LYMPHOCYTIC LEUKAEMIA
     Dates: start: 20060102, end: 20060828
  4. HYDROCORTISONE [Suspect]
     Indication: ACUTE LYMPHOCYTIC LEUKAEMIA
     Dates: start: 20060102, end: 20060828
  5. DEXAMETHASONE TAB [Suspect]
  6. VINCRISTINE [Suspect]
  7. 6MP [Suspect]

REACTIONS (9)
  - BACK PAIN [None]
  - INSOMNIA [None]
  - INTRASPINAL ABSCESS [None]
  - OSTEOMYELITIS [None]
  - POST PROCEDURAL COMPLICATION [None]
  - POST PROCEDURAL VOMITING [None]
  - PROCEDURAL PAIN [None]
  - PROCEDURAL SITE REACTION [None]
  - PYREXIA [None]
